FAERS Safety Report 8452103-2 (Version None)
Quarter: 2012Q2

REPORT INFORMATION
  Report Type: 
  Country: None (occurrence: None)
  Receive Date: 20120620
  Receipt Date: 20120613
  Transmission Date: 20120825
  Serious: Yes (Hospitalization, Other)
  Sender: FDA-Public Use
  Company Number: US-GLAXOSMITHKLINE-A0958847A

PATIENT
  Age: 45 Year
  Sex: Male
  Weight: 118.2 kg

DRUGS (10)
  1. PROTONIX [Concomitant]
  2. ALDACTONE [Concomitant]
     Dosage: 25MG PER DAY
     Route: 065
  3. REVATIO [Concomitant]
     Dosage: 20MG THREE TIMES PER DAY
     Route: 065
  4. TRACLEER [Concomitant]
     Dosage: 62.5MG TWICE PER DAY
     Route: 065
  5. LASIX [Concomitant]
     Dosage: 60MG TWICE PER DAY
     Route: 065
  6. NEURONTIN [Concomitant]
  7. METOLAZONE [Concomitant]
  8. COREG [Concomitant]
  9. FLOLAN [Suspect]
     Indication: PULMONARY ARTERIAL HYPERTENSION
     Route: 042
     Dates: start: 20111128
  10. OXYGEN [Concomitant]

REACTIONS (7)
  - NAUSEA [None]
  - ILL-DEFINED DISORDER [None]
  - DECREASED APPETITE [None]
  - VOMITING [None]
  - HEADACHE [None]
  - WEIGHT INCREASED [None]
  - TACHYCARDIA [None]
